FAERS Safety Report 6554178-4 (Version None)
Quarter: 2010Q1

REPORT INFORMATION
  Report Type: 
  Country: None (occurrence: None)
  Receive Date: 20100122
  Receipt Date: 20100108
  Transmission Date: 20100710
  Serious: Yes (Other)
  Sender: FDA-Public Use
  Company Number: 2010-00022

PATIENT
  Age: 67 Year
  Sex: Female
  Weight: 81.6475 kg

DRUGS (6)
  1. SIMVASTATIN [Suspect]
     Indication: BLOOD CHOLESTEROL INCREASED
     Dosage: 40 MG, 1 IN 1 D, PER ORAL
     Route: 048
     Dates: start: 20091204
  2. SIMVASTATIN [Suspect]
     Indication: BLOOD TRIGLYCERIDES INCREASED
     Dosage: 40 MG, 1 IN 1 D, PER ORAL
     Route: 048
     Dates: start: 20091204
  3. SYNTHROID TAB [Concomitant]
  4. OMEPRAZOLE [Concomitant]
  5. ASPIRIN TAB (TABLETS) [Concomitant]
  6. MULTIVITAMINS/FISH OIL [Concomitant]

REACTIONS (3)
  - CONDITION AGGRAVATED [None]
  - EXTRASYSTOLES [None]
  - PARAESTHESIA [None]
